FAERS Safety Report 5930142-0 (Version None)
Quarter: 2008Q4

REPORT INFORMATION
  Report Type: 
  Country: None (occurrence: None)
  Receive Date: 20081024
  Receipt Date: 20081014
  Transmission Date: 20090506
  Serious: Yes (Other)
  Sender: FDA-Public Use
  Company Number: US-PFIZER INC-2008086610

PATIENT
  Sex: Female
  Weight: 68 kg

DRUGS (4)
  1. AROMASIN [Suspect]
     Indication: BREAST CANCER
     Route: 048
  2. ATENOLOL [Interacting]
  3. LASIX [Concomitant]
  4. COUMADIN [Concomitant]

REACTIONS (4)
  - CARDIAC MURMUR [None]
  - DIZZINESS [None]
  - DRUG INTERACTION [None]
  - WEIGHT INCREASED [None]
